FAERS Safety Report 5325658-4 (Version None)
Quarter: 2007Q2

REPORT INFORMATION
  Report Type: 
  Country: None (occurrence: None)
  Receive Date: 20070515
  Receipt Date: 20070503
  Transmission Date: 20071010
  Serious: Yes (Hospitalization, Other)
  Sender: FDA-Public Use
  Company Number: US-PFIZER INC-2007036372

PATIENT
  Sex: Female

DRUGS (1)
  1. BEXTRA [Suspect]
     Indication: BACK PAIN

REACTIONS (3)
  - ANXIETY [None]
  - DEPRESSION [None]
  - TRANSIENT ISCHAEMIC ATTACK [None]
